FAERS Safety Report 7443695-0 (Version None)
Quarter: 2011Q2

REPORT INFORMATION
  Report Type: 
  Country: None (occurrence: None)
  Receive Date: 20110428
  Receipt Date: 20110427
  Transmission Date: 20111010
  Serious: Yes (Other)
  Sender: FDA-Public Use
  Company Number: CA-ABBOTT-11P-028-0721978-00

PATIENT
  Sex: Female
  Weight: 36 kg

DRUGS (5)
  1. NORVASC [Concomitant]
     Indication: PRODUCT USED FOR UNKNOWN INDICATION
  2. MAVIK [Suspect]
     Dosage: 1 MG   3 TABS
     Dates: start: 20101022
  3. HYDROCHLORTHIAZIDE [Concomitant]
     Indication: PRODUCT USED FOR UNKNOWN INDICATION
  4. AVAPRO [Concomitant]
     Indication: PRODUCT USED FOR UNKNOWN INDICATION
  5. MAVIK [Suspect]
     Indication: ESSENTIAL HYPERTENSION
     Dates: start: 20090727

REACTIONS (3)
  - HYPOTHYROIDISM [None]
  - FEMUR FRACTURE [None]
  - FALL [None]
